FAERS Safety Report 20813631 (Version 2)
Quarter: 2022Q3

REPORT INFORMATION
  Report Type: Report from Study
  Country: DE (occurrence: None)
  Receive Date: 20220511
  Receipt Date: 20220714
  Transmission Date: 20221026
  Serious: Yes (Hospitalization)
  Sender: FDA-Public Use
  Company Number: DE-ROCHE-3090187

PATIENT
  Age: 46 Year
  Sex: Female
  Weight: 63 kg

DRUGS (15)
  1. ATEZOLIZUMAB [Suspect]
     Active Substance: ATEZOLIZUMAB
     Indication: Triple negative breast cancer
     Dosage: DATE OF LAST DOSE PRIOR TO SAE:28/MAR/2022
     Route: 041
     Dates: start: 20211213
  2. PACLITAXEL [Suspect]
     Active Substance: PACLITAXEL
     Indication: Triple negative breast cancer
     Dosage: DATE OF LAST DOSE PRIOR TO SAE:21/MAR/2022
     Route: 042
     Dates: start: 20211227
  3. CYCLOPHOSPHAMIDE [Suspect]
     Active Substance: CYCLOPHOSPHAMIDE
     Indication: Triple negative breast cancer
     Dosage: DATE OF LAST DOSE PRIOR TO SAE:28/MAR/2022
     Route: 042
     Dates: start: 20220328
  4. CARBOPLATIN [Suspect]
     Active Substance: CARBOPLATIN
     Indication: Triple negative breast cancer
     Dosage: DATE OF LAST DOSE PRIOR TO SAE:21/MAR/2022
     Route: 042
     Dates: start: 20211227
  5. EPIRUBICIN [Suspect]
     Active Substance: EPIRUBICIN
     Indication: Triple negative breast cancer
     Dosage: DATE OF LAST DOSE PRIOR TO SAE: 28/MAR/2022
     Route: 042
     Dates: start: 20220328
  6. ZOFRAN [Concomitant]
     Active Substance: ONDANSETRON HYDROCHLORIDE
     Dosage: OTHER
     Dates: start: 20211227, end: 20220530
  7. DIMETHINDENE [Concomitant]
     Active Substance: DIMETHINDENE
     Dosage: OTHER
     Dates: start: 20211227, end: 20220321
  8. FILGRASTIM [Concomitant]
     Active Substance: FILGRASTIM
     Dosage: 30MIO IE OTHER
     Dates: start: 20220221
  9. METHYLPREDNISOLONE ACEPONATE [Concomitant]
     Active Substance: METHYLPREDNISOLONE ACEPONATE
     Dosage: 0.1 % AS NEEDED
     Dates: start: 20220228
  10. MOMETASONE [Concomitant]
     Active Substance: MOMETASONE
     Dosage: NA NA AS NEEDED
     Dates: start: 20220311
  11. MCP [Concomitant]
     Active Substance: METOCLOPRAMIDE HYDROCHLORIDE
     Dosage: 10 MG AS NEEDED
     Dates: start: 20220317
  12. DEXAMETHASONE [Concomitant]
     Active Substance: DEXAMETHASONE
     Dates: start: 20211227, end: 20220530
  13. BATRAFEN [Concomitant]
     Dates: start: 20220311
  14. HERBALS\PLANTAGO OVATA LEAF [Concomitant]
     Active Substance: HERBALS\PLANTAGO OVATA LEAF
     Dates: start: 20220314
  15. APREPITANT [Concomitant]
     Active Substance: APREPITANT
     Dosage: DOSE:125/80 MG
     Dates: start: 20220328, end: 20220530

REACTIONS (1)
  - Febrile neutropenia [Recovered/Resolved]

NARRATIVE: CASE EVENT DATE: 20220405
